FAERS Safety Report 8908699 (Version 1)
Quarter: 2012Q4

REPORT INFORMATION
  Report Type: 
  Country: US (occurrence: US)
  Receive Date: 20121113
  Receipt Date: 20121113
  Transmission Date: 20130627
  Serious: No
  Sender: FDA-Public Use
  Company Number: US-AMGEN-USASP2012011448

PATIENT
  Age: 64 Year
  Sex: Female

DRUGS (3)
  1. ENBREL [Suspect]
     Indication: PSORIATIC ARTHROPATHY
     Dosage: 50 mg, 2 times/wk
     Dates: start: 201112
  2. METHOTREXATE [Concomitant]
     Dosage: 2.5 mg, qwk
  3. FOLIC ACID [Concomitant]
     Dosage: 1 mg, qd

REACTIONS (3)
  - Sinus disorder [Unknown]
  - Sinus headache [Not Recovered/Not Resolved]
  - Psoriasis [Unknown]
